FAERS Safety Report 8519539-2 (Version None)
Quarter: 2012Q3

REPORT INFORMATION
  Report Type: 
  Country: None (occurrence: None)
  Receive Date: 20120718
  Receipt Date: 20110223
  Transmission Date: 20120928
  Serious: Yes (Other)
  Sender: FDA-Public Use
  Company Number: PHHY2012FR049941

PATIENT

DRUGS (3)
  1. TACROLIMUS [Concomitant]
     Indication: IMMUNOSUPPRESSION
     Dosage: UNK UKN, UNK
  2. MYCOPHENOLATE MOFETIL [Suspect]
     Indication: IMMUNOSUPPRESSION
     Dosage: UNK UKN, UNK
  3. STEROIDS NOS [Concomitant]
     Indication: IMMUNOSUPPRESSION
     Dosage: UNK UKN, UNK

REACTIONS (2)
  - DIARRHOEA [None]
  - INTESTINAL VILLI ATROPHY [None]
